FAERS Safety Report 9590462 (Version 1)
Quarter: 2013Q4

REPORT INFORMATION
  Report Type: Spontaneous
  Country: US (occurrence: US)
  Receive Date: 20131003
  Receipt Date: 20131003
  Transmission Date: 20140711
  Serious: No
  Sender: FDA-Public Use
  Company Number: US-AMGEN-USASP2012077488

PATIENT
  Age: 55 Year
  Sex: Female
  Weight: 104 kg

DRUGS (18)
  1. ENBREL [Suspect]
     Indication: RHEUMATOID ARTHRITIS
     Dosage: 50 MG, QWK
  2. CYMBALTA [Concomitant]
     Dosage: 20 MG, UNK
  3. PLAQUENIL                          /00072602/ [Concomitant]
     Dosage: 200 MG, UNK
  4. TORSEMIDE [Concomitant]
     Dosage: 10 MG, UNK
  5. PREDNISONE [Concomitant]
     Dosage: 1 MG, UNK
  6. VOLTAREN                           /00372301/ [Concomitant]
     Dosage: 1 %, UNK
  7. LYRICA [Concomitant]
     Dosage: 25 MG, UNK
  8. EXFORGE [Concomitant]
     Dosage: 5-160 MG, UNK
  9. LISINOPRIL [Concomitant]
     Dosage: 2.5 MG, UNK
  10. CLINDAMYCIN [Concomitant]
     Dosage: 150 MG, UNK
  11. SIMVASTATIN [Concomitant]
     Dosage: 10 MG, UNK
  12. METOPROLOL [Concomitant]
     Dosage: 25 MG, UNK
  13. KLOR-CON [Concomitant]
     Dosage: 08 MEQ, UNK
  14. HYDROCODONE/APAP [Concomitant]
     Dosage: 5-300 MG, UNK
  15. FISH OIL [Concomitant]
     Dosage: UNK
  16. BENADRYL ALLERGY/COLD [Concomitant]
     Dosage: UNK
  17. SULFASALAZINE [Concomitant]
     Dosage: 500 MG, UNK
  18. IRON [Concomitant]
     Dosage: 25 MG, UNK

REACTIONS (1)
  - Arthropathy [Unknown]
